FAERS Safety Report 12377057 (Version 1)
Quarter: 2016Q2

REPORT INFORMATION
  Report Type: Report from Study
  Country: US (occurrence: US)
  Receive Date: 20160517
  Receipt Date: 20160517
  Transmission Date: 20160815
  Serious: No
  Sender: FDA-Public Use
  Company Number: US-MALLINCKRODT-T201503621

PATIENT
  Sex: Male
  Weight: 114 kg

DRUGS (1)
  1. REPOSITORY CORTICOTROPIN INJECTION [Suspect]
     Active Substance: CORTICOTROPIN
     Indication: RHEUMATOID ARTHRITIS
     Dosage: 80 UNITS 2X WEEK
     Route: 042
     Dates: start: 20150715, end: 2015

REACTIONS (5)
  - Insomnia [Unknown]
  - Hypertension [Unknown]
  - Blister [Unknown]
  - Post procedural infection [Unknown]
  - Weight increased [Recovered/Resolved]

NARRATIVE: CASE EVENT DATE: 2015
